FAERS Safety Report 9345925 (Version 2)
Quarter: 2013Q3

REPORT INFORMATION
  Report Type: Spontaneous
  Country: US (occurrence: US)
  Receive Date: 20130613
  Receipt Date: 20130703
  Transmission Date: 20140515
  Serious: Yes (Hospitalization)
  Sender: FDA-Public Use
  Company Number: US-UCBSA-087922

PATIENT
  Sex: Female
  Weight: 90.9 kg

DRUGS (4)
  1. VIMPAT [Suspect]
     Indication: CONVULSION
     Dosage: DOSE:100 (UNITS UNSPECIFIED)
     Route: 048
     Dates: start: 20090629, end: 20091029
  2. TRILEPTAL [Concomitant]
     Indication: CONVULSION
     Dosage: DOSE:900
     Route: 048
     Dates: start: 20051006
  3. KEPPRA [Concomitant]
     Indication: CONVULSION
     Dosage: DOSE: 2000
     Route: 048
     Dates: start: 20061030
  4. NEURONTIN [Concomitant]
     Dosage: DOSE:400
     Route: 048
     Dates: start: 20110808

REACTIONS (1)
  - Abdominal pain [Recovering/Resolving]
